FAERS Safety Report 10202227 (Version 2)
Quarter: 2014Q2

REPORT INFORMATION
  Report Type: Spontaneous
  Country: US (occurrence: US)
  Receive Date: 20140528
  Receipt Date: 20140528
  Transmission Date: 20141212
  Serious: No
  Sender: FDA-Public Use
  Company Number: US-BRISTOL-MYERS SQUIBB COMPANY-20089298

PATIENT
  Age: 75 Year
  Sex: Male
  Weight: 72.56 kg

DRUGS (1)
  1. METFORMIN HCL [Suspect]

REACTIONS (2)
  - Heart rate increased [Unknown]
  - Malaise [Unknown]
